FAERS Safety Report 7763274-5 (Version None)
Quarter: 2011Q3

REPORT INFORMATION
  Report Type: 
  Country: None (occurrence: None)
  Receive Date: 20110920
  Receipt Date: 20110914
  Transmission Date: 20111222
  Serious: Yes (Other)
  Sender: FDA-Public Use
  Company Number: US-TEVA-300769USA

PATIENT
  Sex: Female
  Weight: 36.32 kg

DRUGS (24)
  1. PROAIR HFA [Suspect]
     Indication: ASTHMA
     Route: 055
  2. SERETIDE                           /01420901/ [Concomitant]
     Indication: EMPHYSEMA
  3. SERETIDE                           /01420901/ [Concomitant]
     Indication: CHRONIC OBSTRUCTIVE PULMONARY DISEASE
  4. CALCIUM CITRATE [Concomitant]
  5. PROAIR HFA [Suspect]
     Indication: CHRONIC OBSTRUCTIVE PULMONARY DISEASE
  6. CLARITHROMYCIN [Concomitant]
  7. PROAIR HFA [Suspect]
     Indication: EMPHYSEMA
  8. SERETIDE                           /01420901/ [Concomitant]
     Indication: PRODUCT USED FOR UNKNOWN INDICATION
  9. IPRATROPIUM BROMIDE [Concomitant]
     Indication: EMPHYSEMA
  10. RIFAMPICIN [Concomitant]
  11. METOPROLOL TARTRATE [Concomitant]
     Indication: CARDIAC DISORDER
  12. RAMIPRIL [Concomitant]
     Indication: CARDIAC DISORDER
  13. PROAIR HFA [Suspect]
     Indication: PRODUCT USED FOR UNKNOWN INDICATION
  14. IPRATROPIUM BROMIDE [Concomitant]
     Indication: ASTHMA
  15. ETHAMBUTOL HYDROCHLORIDE [Concomitant]
  16. IPRATROPIUM BROMIDE [Concomitant]
     Indication: PRODUCT USED FOR UNKNOWN INDICATION
  17. SERETIDE                           /01420901/ [Concomitant]
     Indication: ASTHMA
  18. IPRATROPIUM BROMIDE [Concomitant]
     Indication: CHRONIC OBSTRUCTIVE PULMONARY DISEASE
  19. TERBUTALINE SULFATE [Concomitant]
     Indication: ASTHMA
  20. TERBUTALINE SULFATE [Concomitant]
     Indication: EMPHYSEMA
  21. TERBUTALINE SULFATE [Concomitant]
     Indication: CHRONIC OBSTRUCTIVE PULMONARY DISEASE
  22. TERBUTALINE SULFATE [Concomitant]
     Indication: PRODUCT USED FOR UNKNOWN INDICATION
  23. CLOPIDOGREL [Concomitant]
     Indication: CARDIAC DISORDER
  24. AXOTAL                             /00727001/ [Concomitant]
     Indication: PAIN

REACTIONS (3)
  - DRUG INEFFECTIVE [None]
  - HYPERTROPHIC CARDIOMYOPATHY [None]
  - MYOCARDIAL INFARCTION [None]
